FAERS Safety Report 13055747 (Version 1)
Quarter: 2016Q4

REPORT INFORMATION
  Report Type: Spontaneous
  Country: US (occurrence: US)
  Receive Date: 20161222
  Receipt Date: 20161222
  Transmission Date: 20170207
  Serious: No
  Sender: FDA-Public Use
  Company Number: US-ELI_LILLY_AND_COMPANY-US201612000112

PATIENT
  Age: 24 Year
  Sex: Male

DRUGS (1)
  1. TALTZ [Suspect]
     Active Substance: IXEKIZUMAB
     Indication: PRODUCT USED FOR UNKNOWN INDICATION
     Dosage: 80 MG, UNKNOWN
     Route: 065

REACTIONS (5)
  - Pharyngitis streptococcal [Recovered/Resolved]
  - Scrotal oedema [Recovered/Resolved]
  - Binge drinking [Recovered/Resolved]
  - Petechiae [Recovered/Resolved]
  - Oedema peripheral [Recovered/Resolved]
